FAERS Safety Report 15537187 (Version 1)
Quarter: 2018Q4

REPORT INFORMATION
  Report Type: Report from Study
  Country: DE (occurrence: DE)
  Receive Date: 20181022
  Receipt Date: 20181022
  Transmission Date: 20190205
  Serious: Yes (Other)
  Sender: FDA-Public Use
  Company Number: DE-PFIZER INC-2018422941

PATIENT
  Age: 50 Year
  Sex: Female
  Weight: 142 kg

DRUGS (6)
  1. FENTANYL. [Concomitant]
     Active Substance: FENTANYL
     Dosage: EVERY 3 DAYS
     Route: 065
  2. ETHINYLESTRADIOL/LEVONORGESTREL [Suspect]
     Active Substance: ETHINYL ESTRADIOL\LEVONORGESTREL
     Dosage: (21 LNG 0.15/0.03MG)
     Route: 048
     Dates: start: 20180501, end: 20180520
  3. METOHEXAL [METOPROLOL TARTRATE] [Concomitant]
     Active Substance: METOPROLOL TARTRATE
     Dosage: 47.5 OT, (BID) TWICE DAILY
     Route: 065
  4. PREGABALIN. [Concomitant]
     Active Substance: PREGABALIN
     Dosage: 150 OT, BID (1-0-2)
     Route: 065
  5. RAMIPRIL. [Concomitant]
     Active Substance: RAMIPRIL
     Dosage: 5 OT, (QD) ONCE A DAY
     Route: 065
  6. TIZANIDINE. [Concomitant]
     Active Substance: TIZANIDINE
     Dosage: 2 MG, BID
     Route: 065

REACTIONS (5)
  - Peripheral swelling [Unknown]
  - Deep vein thrombosis [Unknown]
  - Musculoskeletal stiffness [Unknown]
  - Muscular weakness [Unknown]
  - Limb discomfort [Unknown]

NARRATIVE: CASE EVENT DATE: 20180522
